FAERS Safety Report 7519301-3 (Version None)
Quarter: 2011Q2

REPORT INFORMATION
  Report Type: 
  Country: None (occurrence: None)
  Receive Date: 20110602
  Receipt Date: 20110524
  Transmission Date: 20111010
  Serious: Yes (Other)
  Sender: FDA-Public Use
  Company Number: IT-ASTRAZENECA-2011SE32230

PATIENT
  Age: 70 Year
  Sex: Male

DRUGS (6)
  1. TARGOCID [Suspect]
     Indication: INFECTION
     Route: 042
     Dates: start: 20110408, end: 20110428
  2. SEROQUEL [Concomitant]
     Route: 048
  3. OXCARBAZEPINE [Suspect]
     Indication: COGNITIVE DISORDER
     Route: 048
     Dates: start: 20110409, end: 20110428
  4. DIFLUCAN [Suspect]
     Indication: INFECTION
     Route: 048
     Dates: start: 20110408, end: 20110427
  5. MERREM [Suspect]
     Indication: INFECTION
     Route: 042
     Dates: start: 20110408, end: 20110428
  6. ENOXAPARIN SODIUM [Concomitant]

REACTIONS (2)
  - BONE MARROW FAILURE [None]
  - ERYTHEMA [None]
